FAERS Safety Report 20497321 (Version 2)
Quarter: 2022Q1

REPORT INFORMATION
  Report Type: Spontaneous
  Country: CN (occurrence: CN)
  Receive Date: 20220221
  Receipt Date: 20220225
  Transmission Date: 20220424
  Serious: Yes (Hospitalization)
  Sender: FDA-Public Use
  Company Number: CN-NOVARTISPH-NVSC2022CN018888

PATIENT
  Age: 86 Year
  Sex: Male
  Weight: 65 kg

DRUGS (9)
  1. ACLASTA [Suspect]
     Active Substance: ZOLEDRONIC ACID
     Indication: Osteoporosis
     Dosage: 1 DOSAGE FORM, ONCE/SINGLE (60GTT/ML, QD)
     Route: 042
     Dates: start: 20220124
  2. VITAMIN D2 [Concomitant]
     Active Substance: ERGOCALCIFEROL
     Indication: Product used for unknown indication
     Dosage: 15 MG (1ML:5MG, 3 INJECTIONS ONCE 1 DAY)
     Route: 030
     Dates: start: 20220119
  3. INDOMETHACIN [Concomitant]
     Active Substance: INDOMETHACIN
     Indication: Product used for unknown indication
     Dosage: UNK (14CMX10CMX6 PIECES, 1 BAG 1 BAG EXTERNAL USE)
     Route: 065
     Dates: start: 20220118
  4. INDOMETHACIN [Concomitant]
     Active Substance: INDOMETHACIN
     Dosage: UNK (14CMX10CMX6 PIECES, 1 BAG 2 BAGS EXTERNAL USE)
     Route: 065
     Dates: start: 20220120
  5. SODIUM CHLORIDE [Concomitant]
     Active Substance: SODIUM CHLORIDE
     Indication: Product used for unknown indication
     Dosage: 500 ML (ONCE 60GTT/MIN 1 DAY)
     Route: 041
     Dates: start: 20220124
  6. SODIUM CHLORIDE [Concomitant]
     Active Substance: SODIUM CHLORIDE
     Dosage: 2 ML, ONCE/SINGLE (10ML:0.09G)
     Route: 030
     Dates: start: 20220124
  7. PARECOXIB SODIUM [Concomitant]
     Active Substance: PARECOXIB SODIUM
     Indication: Analgesic therapy
     Dosage: 40 MG, ONCE/SINGLE
     Route: 030
     Dates: start: 20220124
  8. PARECOXIB SODIUM [Concomitant]
     Active Substance: PARECOXIB SODIUM
     Indication: Antiinflammatory therapy
  9. CALCITONIN SALMON [Concomitant]
     Active Substance: CALCITONIN SALMON
     Indication: Product used for unknown indication
     Dosage: 1 DOSAGE FORM, ONCE/SINGLE 20UGX28SPRAY, 1 SPRAY 1 INJECTION EXTERNAL USE)
     Route: 065
     Dates: start: 20220124

REACTIONS (13)
  - Spinal cord injury [Unknown]
  - Hemiplegia [Unknown]
  - Urinary incontinence [Not Recovered/Not Resolved]
  - Spinal pain [Unknown]
  - Osteocalcin decreased [Unknown]
  - Blood phosphorus decreased [Unknown]
  - Blood bilirubin increased [Unknown]
  - Bilirubin conjugated increased [Unknown]
  - Total bile acids increased [Unknown]
  - Blood alkaline phosphatase increased [Unknown]
  - Blood albumin abnormal [Unknown]
  - Cystatin C increased [Unknown]
  - Muscular weakness [Not Recovered/Not Resolved]

NARRATIVE: CASE EVENT DATE: 20220124
